FAERS Safety Report 9979492 (Version 2)
Quarter: 2014Q1

REPORT INFORMATION
  Report Type: Report from Study
  Country: US (occurrence: US)
  Receive Date: 20140306
  Receipt Date: 20140306
  Transmission Date: 20141002
  Serious: No
  Sender: FDA-Public Use
  Company Number: US-ABBVIE-13P-163-1156885-00

PATIENT
  Age: 47 Year
  Sex: Female

DRUGS (9)
  1. HUMIRA [Suspect]
     Indication: CROHN^S DISEASE
     Dates: start: 20131003, end: 20131003
  2. HUMIRA [Suspect]
  3. FLUOXETINE [Concomitant]
     Indication: DEPRESSION
  4. ABILIFY [Concomitant]
     Indication: DEPRESSION
     Dosage: AT HS
  5. DIAZEPAM [Concomitant]
     Indication: ANXIETY
     Dosage: AT HS AS NEEDED
  6. MULTIVITAMIN [Concomitant]
  7. VITAMIN D [Concomitant]
  8. VICODIN [Concomitant]
     Indication: ARTHRALGIA
  9. AMLODIPINE [Concomitant]
     Indication: BLOOD PRESSURE

REACTIONS (6)
  - Diarrhoea [Not Recovered/Not Resolved]
  - Injection site pain [Not Recovered/Not Resolved]
  - Anxiety [Not Recovered/Not Resolved]
  - Bipolar disorder [Not Recovered/Not Resolved]
  - Injection site haemorrhage [Unknown]
  - Drug ineffective [Not Recovered/Not Resolved]
